FAERS Safety Report 8305140-2 (Version None)
Quarter: 2012Q2

REPORT INFORMATION
  Report Type: 
  Country: None (occurrence: None)
  Receive Date: 20120405
  Receipt Date: 20120327
  Transmission Date: 20120825
  Serious: Yes (Other)
  Sender: FDA-Public Use
  Company Number: 2012031831

PATIENT
  Sex: Female

DRUGS (2)
  1. VIVAGLOBIN [Suspect]
     Indication: HYPOGAMMAGLOBULINAEMIA
     Dosage: (9.6 G 1X/WEEK SUBCUTANEOUS)
     Route: 058
     Dates: end: 20110501
  2. VIVAGLOBIN [Suspect]
     Indication: IMMUNODEFICIENCY COMMON VARIABLE
     Dosage: (9.6 G 1X/WEEK SUBCUTANEOUS)
     Route: 058
     Dates: end: 20110501

REACTIONS (2)
  - SIMPLEX VIRUS TEST POSITIVE [None]
  - TRANSMISSION OF AN INFECTIOUS AGENT VIA A MEDICINAL PRODUCT [None]
